FAERS Safety Report 14977747 (Version 1)
Quarter: 2018Q2

REPORT INFORMATION
  Report Type: Spontaneous
  Country: US (occurrence: US)
  Receive Date: 20180515
  Receipt Date: 20180515
  Transmission Date: 20180711
  Serious: Yes (Disabling, Other)
  Sender: FDA-Public Use
  Company Number: None

PATIENT
  Age: 55 Year
  Sex: Female
  Weight: 103.5 kg

DRUGS (20)
  1. CYMBALTA [Concomitant]
     Active Substance: DULOXETINE HYDROCHLORIDE
  2. GLUCOSAMINE HCI/MSM [Concomitant]
  3. MULTI PROBIOTIC-TRUNATURE [Concomitant]
  4. SYSTANE EYEDROPS [Concomitant]
     Active Substance: POLYETHYLENE GLYCOL 400\PROPYLENE GLYCOL
  5. LASIX [Concomitant]
     Active Substance: FUROSEMIDE
  6. FLONASE [Concomitant]
     Active Substance: FLUTICASONE PROPIONATE
  7. MAG [Concomitant]
  8. CAL [Concomitant]
  9. VITAMIN C [Concomitant]
     Active Substance: ASCORBIC ACID
  10. MG213 SHAMPOO [Concomitant]
  11. HUMIRA [Suspect]
     Active Substance: ADALIMUMAB
     Indication: PSORIASIS
     Dosage: ?          QUANTITY:1 INJECTION(S);OTHER FREQUENCY:EVERY 2 WEEKS;?
     Route: 058
     Dates: start: 20170406, end: 20180315
  12. HUMIRA [Suspect]
     Active Substance: ADALIMUMAB
     Indication: PSORIATIC ARTHROPATHY
     Dosage: ?          QUANTITY:1 INJECTION(S);OTHER FREQUENCY:EVERY 2 WEEKS;?
     Route: 058
     Dates: start: 20170406, end: 20180315
  13. SUPER B COMPLEX [Concomitant]
     Active Substance: CYANOCOBALAMIN\DEXPANTHENOL\NIACINAMIDE\PYRIDOXINE HYDROCHLORIDE\RIBOFLAVIN 5^-PHOSPHATE SODIUM\THIAMINE HYDROCHLORIDE\VITAMIN B COMPLEX
  14. DERMOTIC EAR OIL [Concomitant]
  15. PSORIASIS SKIN MEDS [Concomitant]
  16. ZINC. [Concomitant]
     Active Substance: ZINC
  17. VITAMIN D3 [Concomitant]
     Active Substance: CHOLECALCIFEROL
  18. FISH OIL [Concomitant]
     Active Substance: FISH OIL
  19. TUMERIC-TRUNATURE [Concomitant]
  20. VITAMIN E [Concomitant]
     Active Substance: .ALPHA.-TOCOPHEROL

REACTIONS (23)
  - Alopecia [None]
  - Rash generalised [None]
  - Skin disorder [None]
  - Gingival recession [None]
  - Impaired healing [None]
  - Generalised erythema [None]
  - Memory impairment [None]
  - Asthenia [None]
  - Malaise [None]
  - Madarosis [None]
  - Sensitivity of teeth [None]
  - Abnormal behaviour [None]
  - Antisocial behaviour [None]
  - Fatigue [None]
  - Arthralgia [None]
  - Tendon pain [None]
  - Grip strength decreased [None]
  - Pain in extremity [None]
  - Peripheral swelling [None]
  - Depressed level of consciousness [None]
  - Skin lesion [None]
  - Thinking abnormal [None]
  - Ligament pain [None]
